FAERS Safety Report 17158992 (Version 1)
Quarter: 2019Q4

REPORT INFORMATION
  Report Type: Spontaneous
  Country: IN (occurrence: IN)
  Receive Date: 20191216
  Receipt Date: 20191216
  Transmission Date: 20200122
  Serious: Yes (Death, Other)
  Sender: FDA-Public Use
  Company Number: IN-PFIZER INC-2019031978

PATIENT
  Age: 61 Year
  Sex: Female

DRUGS (7)
  1. PALBACE [Suspect]
     Active Substance: PALBOCICLIB
     Indication: BREAST CANCER METASTATIC
     Dosage: 125 MG, 1X/DAY
     Route: 048
     Dates: start: 20180626
  2. EXEMESTANE. [Suspect]
     Active Substance: EXEMESTANE
     Dosage: 25 MG, 1X/DAY (FOR 3 MONTHS)
     Route: 048
  3. GEMCAL P [CALCIUM\CHOLECALCIFEROL\MAGNESIUM\PHOSPHORUS\ZINC] [Suspect]
     Active Substance: CALCIUM\CHOLECALCIFEROL\MAGNESIUM\PHOSPHORUS\ZINC
     Dosage: 1 DF, UNK (1 DF X 30)
     Route: 048
  4. LETROZOLE. [Suspect]
     Active Substance: LETROZOLE
     Dosage: 2.5 MG, UNK
     Route: 048
  5. PALBACE [Suspect]
     Active Substance: PALBOCICLIB
     Dosage: 100 MG, CYCLIC (3 WEEKS ON, 1 WEEK OFF) FOR 3 MONTHS
     Route: 048
  6. TAPAL (TAPENTADOL HYDROCHLORIDE) [Suspect]
     Active Substance: TAPENTADOL HYDROCHLORIDE
     Dosage: 100 KG, 1X/DAY
  7. IBANDRONATE [Suspect]
     Active Substance: IBANDRONATE SODIUM
     Dosage: 150 MG, MONTHLY

REACTIONS (13)
  - Arthralgia [Unknown]
  - Haemoglobin decreased [Unknown]
  - Death [Fatal]
  - Dyspnoea [Recovering/Resolving]
  - Pain [Unknown]
  - Dyspnoea [Unknown]
  - Back pain [Unknown]
  - Abdominal pain [Unknown]
  - Anxiety [Unknown]
  - Chest pain [Recovering/Resolving]
  - Blood pressure increased [Unknown]
  - Stomatitis [Recovering/Resolving]
  - Platelet count decreased [Unknown]

NARRATIVE: CASE EVENT DATE: 20191207
